FAERS Safety Report 4919346-3 (Version None)
Quarter: 2006Q1

REPORT INFORMATION
  Report Type: 
  Country: None (occurrence: None)
  Receive Date: 20060216
  Receipt Date: 20060203
  Transmission Date: 20060701
  Serious: Yes (Other)
  Sender: FDA-Public Use
  Company Number: 2006018811

PATIENT
  Age: 19 Year
  Sex: Female

DRUGS (3)
  1. DEPO-PROVERA [Suspect]
     Indication: CONTRACEPTION
     Dosage: SEE IMAGE
     Route: 030
     Dates: start: 20050708, end: 20050708
  2. DEPO-PROVERA [Suspect]
     Indication: CONTRACEPTION
     Dosage: SEE IMAGE
     Route: 030
     Dates: start: 20050923, end: 20050923
  3. DEPO-PROVERA [Suspect]

REACTIONS (5)
  - APGAR SCORE LOW [None]
  - CAESAREAN SECTION [None]
  - DRUG EXPOSURE DURING PREGNANCY [None]
  - PREGNANCY [None]
  - STILLBIRTH [None]
